FAERS Safety Report 6752413-0 (Version None)
Quarter: 2010Q2

REPORT INFORMATION
  Report Type: 
  Country: None (occurrence: None)
  Receive Date: 20100602
  Receipt Date: 20100527
  Transmission Date: 20101027
  Serious: Yes (Other)
  Sender: FDA-Public Use
  Company Number: Z0004406A

PATIENT
  Sex: Male
  Weight: 92 kg

DRUGS (2)
  1. PLACEBO [Suspect]
     Indication: RHEUMATOID ARTHRITIS
     Dates: start: 20091209, end: 20091222
  2. OFATUMUMAB [Suspect]
     Indication: RHEUMATOID ARTHRITIS
     Route: 042
     Dates: start: 20100526

REACTIONS (1)
  - ANAPHYLACTIC REACTION [None]
